FAERS Safety Report 26005573 (Version 1)
Quarter: 2025Q4

REPORT INFORMATION
  Report Type: Spontaneous
  Country: IN (occurrence: IN)
  Receive Date: 20251106
  Receipt Date: 20251106
  Transmission Date: 20260117
  Serious: Yes (Hospitalization, Other)
  Sender: MANKIND PHARMA
  Company Number: IN-MankindUS-000469

PATIENT
  Age: 61 Year
  Sex: Male

DRUGS (1)
  1. NITROFURANTOIN [Suspect]
     Active Substance: NITROFURANTOIN
     Indication: Dysuria
     Dosage: 100 MG TWICE A DAY

REACTIONS (1)
  - Cutaneous vasculitis [Recovered/Resolved]
